FAERS Safety Report 19476671 (Version 1)
Quarter: 2021Q2

REPORT INFORMATION
  Report Type: Spontaneous
  Country: NL (occurrence: PL)
  Receive Date: 20210630
  Receipt Date: 20210630
  Transmission Date: 20210717
  Serious: Yes (Life-Threatening)
  Sender: FDA-Public Use
  Company Number: PL-FRESENIUS KABI-FK202106483

PATIENT
  Age: 58 Year
  Sex: Female
  Weight: 54.5 kg

DRUGS (1)
  1. IRINOTECAN HYDROCHLORIDE INJECTION, 20MG/ML [Suspect]
     Active Substance: IRINOTECAN HYDROCHLORIDE
     Indication: RECTOSIGMOID CANCER
     Route: 042
     Dates: start: 20171221

REACTIONS (3)
  - Cardiac arrest [Recovered/Resolved]
  - Hypoaesthesia oral [Recovered/Resolved]
  - Hypoaesthesia [Recovered/Resolved]

NARRATIVE: CASE EVENT DATE: 20171221
